FAERS Safety Report 12355157 (Version 1)
Quarter: 2016Q2

REPORT INFORMATION
  Report Type: Spontaneous
  Country: US (occurrence: US)
  Receive Date: 20160511
  Receipt Date: 20160511
  Transmission Date: 20160815
  Serious: No
  Sender: FDA-Public Use
  Company Number: US-ACTAVIS-2015-20598

PATIENT

DRUGS (3)
  1. GABAPENTIN (AELLC) [Suspect]
     Active Substance: GABAPENTIN
     Indication: FIBROMYALGIA
     Dosage: 600 MG, TID
     Route: 048
  2. ROPINIROLE (AELLC) [Suspect]
     Active Substance: ROPINIROLE
     Dosage: 3 MG, QHS
  3. ROPINIROLE (AELLC) [Suspect]
     Active Substance: ROPINIROLE
     Indication: RESTLESS LEGS SYNDROME
     Dosage: 2 MG, BID
     Route: 048

REACTIONS (1)
  - Drug ineffective [Unknown]
